FAERS Safety Report 5264602-5 (Version None)
Quarter: 2007Q1

REPORT INFORMATION
  Report Type: 
  Country: None (occurrence: None)
  Receive Date: 20061213
  Receipt Date: 20041021
  Transmission Date: 20070707
  Serious: Yes (Other)
  Sender: FDA-Public Use
  Company Number: 2004UW21921

PATIENT
  Age: 65 Year
  Sex: Female
  Weight: 54.431 kg

DRUGS (2)
  1. IRESSA [Suspect]
     Indication: NON-SMALL CELL LUNG CANCER
     Dates: start: 20040301
  2. SLEEPING PILL [Concomitant]

REACTIONS (9)
  - ANOREXIA [None]
  - ASTHENIA [None]
  - COUGH [None]
  - DEPRESSED MOOD [None]
  - DERMATITIS EXFOLIATIVE [None]
  - DIARRHOEA [None]
  - FATIGUE [None]
  - PHARYNGOLARYNGEAL PAIN [None]
  - RASH [None]
